FAERS Safety Report 4745086-X (Version None)
Quarter: 2005Q3

REPORT INFORMATION
  Report Type: 
  Country: None (occurrence: None)
  Receive Date: 20050815
  Receipt Date: 20050603
  Transmission Date: 20060218
  Serious: Yes (Death, Life-Threatening)
  Sender: FDA-Public Use
  Company Number: BE-ROCHE-406580

PATIENT
  Age: 79 Year
  Sex: Male
  Weight: 65 kg

DRUGS (1)
  1. XELODA [Suspect]
     Indication: COLON NEOPLASM
     Dosage: REPORTED AS 4X500MG AND 2X150MG TWICE DAILY
     Route: 048
     Dates: start: 20050514, end: 20050527

REACTIONS (24)
  - ACUTE PRERENAL FAILURE [None]
  - BLADDER DISORDER [None]
  - CEREBRAL INFARCTION [None]
  - CEREBROVASCULAR ACCIDENT [None]
  - CIRCULATORY COLLAPSE [None]
  - COLITIS [None]
  - CULTURE URINE POSITIVE [None]
  - DEHYDRATION [None]
  - DRUG TOXICITY [None]
  - ELECTROCARDIOGRAM ABNORMAL [None]
  - ENTEROCOLITIS [None]
  - ESCHERICHIA INFECTION [None]
  - GENERAL PHYSICAL HEALTH DETERIORATION [None]
  - HYDRONEPHROSIS [None]
  - INTESTINAL DILATATION [None]
  - LUNG DISORDER [None]
  - NEUTROPENIC SEPSIS [None]
  - PAIN [None]
  - PSEUDOMONAS INFECTION [None]
  - SEPTIC SHOCK [None]
  - STAPHYLOCOCCAL INFECTION [None]
  - STOMATITIS [None]
  - TACHYCARDIA [None]
  - THROMBOCYTOPENIA [None]
